FAERS Safety Report 4644654-3 (Version None)
Quarter: 2005Q2

REPORT INFORMATION
  Report Type: 
  Country: None (occurrence: None)
  Receive Date: 20050422
  Receipt Date: 20050406
  Transmission Date: 20051028
  Serious: Yes (Hospitalization)
  Sender: FDA-Public Use
  Company Number: DSA_70625_2005

PATIENT
  Age: 74 Year
  Sex: Female

DRUGS (3)
  1. DARVOCET-N 100 [Suspect]
     Indication: BACK PAIN
     Dosage: VAR DAILY PO
     Route: 048
     Dates: start: 20050301
  2. DARVOCET-N 100 [Concomitant]
  3. ANTIBIOTIC [Concomitant]

REACTIONS (3)
  - DIARRHOEA [None]
  - DIVERTICULITIS [None]
  - PHARMACEUTICAL PRODUCT COMPLAINT [None]
